FAERS Safety Report 9696838 (Version 1)
Quarter: 2013Q4

REPORT INFORMATION
  Report Type: Spontaneous
  Country: US (occurrence: US)
  Receive Date: 20131119
  Receipt Date: 20131119
  Transmission Date: 20140711
  Serious: No
  Sender: FDA-Public Use
  Company Number: US-GILEAD-2007-0013543

PATIENT
  Age: 37 Year
  Sex: Female
  Weight: 73.94 kg

DRUGS (11)
  1. LETAIRIS [Suspect]
     Indication: PULMONARY ARTERIAL HYPERTENSION
     Route: 048
     Dates: start: 20070910, end: 20070917
  2. REVATIO [Concomitant]
     Route: 048
  3. REMODULIN [Concomitant]
     Dosage: 62 MG/KG/MIN CONTINUOUS
     Route: 058
  4. ALDACTONE [Concomitant]
     Route: 048
  5. FUROSEMIDE [Concomitant]
     Route: 048
  6. DIGOXIN [Concomitant]
     Route: 048
  7. COMBIVENT [Concomitant]
  8. COUMADIN [Concomitant]
     Route: 048
  9. PAXIL [Concomitant]
     Route: 048
  10. MAGNESIUM OXIDE [Concomitant]
     Route: 048
  11. POTASSIUM [Concomitant]
     Route: 048

REACTIONS (1)
  - Drug eruption [Recovered/Resolved]
